FAERS Safety Report 5637919-X (Version None)
Quarter: 2008Q1

REPORT INFORMATION
  Report Type: 
  Country: None (occurrence: None)
  Receive Date: 20080222
  Receipt Date: 20080222
  Transmission Date: 20080703
  Serious: Yes (Life-Threatening)
  Sender: FDA-Public Use
  Company Number: None

PATIENT
  Age: 24 Year
  Sex: Male
  Weight: 88 kg

DRUGS (2)
  1. XYLOCAINE W/ EPINEPHRENE [Suspect]
     Indication: NASAL OPERATION
     Dosage: 13ML ONCE NASAL; SURGERY
     Route: 045
     Dates: start: 20071119, end: 20071119
  2. COCAINE FLAKES [Suspect]
     Dosage: 6 GRAINS ONCE NASAL
     Route: 045

REACTIONS (5)
  - ACUTE PULMONARY OEDEMA [None]
  - BLOOD PRESSURE INCREASED [None]
  - CARDIO-RESPIRATORY ARREST [None]
  - HEART RATE INCREASED [None]
  - NO THERAPEUTIC RESPONSE [None]
